FAERS Safety Report 4431211-7 (Version None)
Quarter: 2004Q3

REPORT INFORMATION
  Report Type: 
  Country: None (occurrence: None)
  Receive Date: 20040823
  Receipt Date: 20040823
  Transmission Date: 20050211
  Serious: Yes (Other)
  Sender: FDA-Public Use
  Company Number: None

PATIENT
  Age: 33 Year
  Sex: Male
  Weight: 106.5953 kg

DRUGS (2)
  1. ZOLOFT [Suspect]
     Indication: DYSPHORIA
     Dosage: DAILY
     Dates: start: 20010808, end: 20030310
  2. CONCERTA [Suspect]
     Indication: ATTENTION DEFICIT/HYPERACTIVITY DISORDER
     Dosage: DAILY
     Dates: start: 20010808, end: 20030310

REACTIONS (15)
  - AGITATION [None]
  - ATTENTION DEFICIT/HYPERACTIVITY DISORDER [None]
  - EMOTIONAL DISORDER [None]
  - EUPHORIC MOOD [None]
  - FEELING ABNORMAL [None]
  - IMPULSE-CONTROL DISORDER [None]
  - INSOMNIA [None]
  - LIBIDO INCREASED [None]
  - MOOD SWINGS [None]
  - PALPITATIONS [None]
  - PARAPHILIA [None]
  - PARENT-CHILD PROBLEM [None]
  - RELATIONSHIP BREAKDOWN [None]
  - SOMNOLENCE [None]
  - SUICIDAL IDEATION [None]
